FAERS Safety Report 6886449-6 (Version None)
Quarter: 2010Q3

REPORT INFORMATION
  Report Type: 
  Country: None (occurrence: None)
  Receive Date: 20100729
  Receipt Date: 20090618
  Transmission Date: 20110219
  Serious: Yes (Other)
  Sender: FDA-Public Use
  Company Number: US-PFIZER INC-2009203778

PATIENT
  Sex: Female
  Weight: 91.61 kg

DRUGS (2)
  1. CELEBREX [Suspect]
     Indication: OSTEOARTHRITIS
     Route: 048
  2. IBUPROFEN [Suspect]

REACTIONS (2)
  - HEARING IMPAIRED [None]
  - MALAISE [None]
